FAERS Safety Report 24460935 (Version 1)
Quarter: 2024Q4

REPORT INFORMATION
  Report Type: Spontaneous
  Country: CN (occurrence: CN)
  Receive Date: 20241018
  Receipt Date: 20241018
  Transmission Date: 20250115
  Serious: No
  Sender: ROCHE
  Company Number: CN-ROCHE-3561758

PATIENT
  Age: 8 Year
  Sex: Female
  Weight: 24.0 kg

DRUGS (1)
  1. MABTHERA [Suspect]
     Active Substance: RITUXIMAB
     Indication: Nephrotic syndrome
     Route: 041
     Dates: start: 20240506, end: 20240507

REACTIONS (4)
  - Rash [Recovered/Resolved]
  - Dyspnoea [Unknown]
  - Dyspnoea [Recovering/Resolving]
  - Off label use [Unknown]

NARRATIVE: CASE EVENT DATE: 20240507
